FAERS Safety Report 6171369-5 (Version None)
Quarter: 2009Q2

REPORT INFORMATION
  Report Type: 
  Country: None (occurrence: None)
  Receive Date: 20090429
  Receipt Date: 20090420
  Transmission Date: 20091009
  Serious: Yes (Other)
  Sender: FDA-Public Use
  Company Number: ZA-PFIZER INC-2009182854

PATIENT

DRUGS (9)
  1. VFEND [Suspect]
     Dosage: UNIT DOSE: UNK; FREQUENCY: UNK, UNK;
  2. LASIX [Concomitant]
  3. COMBIVENT [Concomitant]
  4. PANTOLOC ^BYK^ [Concomitant]
  5. MAXOLON [Concomitant]
  6. EPILIM [Concomitant]
  7. NEUROBION [Concomitant]
  8. SOLU-CORTEF [Concomitant]
  9. RAYZON [Concomitant]

REACTIONS (1)
  - THROMBOSIS [None]
